FAERS Safety Report 24442164 (Version 3)
Quarter: 2025Q2

REPORT INFORMATION
  Report Type: Spontaneous
  Country: US (occurrence: US)
  Receive Date: 20241016
  Receipt Date: 20250529
  Transmission Date: 20250716
  Serious: No
  Sender: ROCHE
  Company Number: US-ROCHE-3534463

PATIENT
  Age: 29 Year
  Sex: Male

DRUGS (1)
  1. HEMLIBRA [Suspect]
     Active Substance: EMICIZUMAB-KXWH
     Indication: Factor VIII deficiency
     Dosage: STRENGTH- 150MG/ML
     Route: 058
     Dates: start: 202311

REACTIONS (3)
  - Ligament sprain [Unknown]
  - Haemorrhage [Unknown]
  - Arthralgia [Unknown]

NARRATIVE: CASE EVENT DATE: 20240326
